FAERS Safety Report 18475556 (Version 1)
Quarter: 2020Q4

REPORT INFORMATION
  Report Type: Report from Study
  Country: GB (occurrence: GB)
  Receive Date: 20201106
  Receipt Date: 20201106
  Transmission Date: 20210114
  Serious: Yes (Other)
  Sender: FDA-Public Use
  Company Number: GB-JNJFOC-20201052022

PATIENT

DRUGS (1)
  1. RISPERDAL [Suspect]
     Active Substance: RISPERIDONE
     Indication: SCHIZOPHRENIA
     Dosage: 2-6 MG/DAY
     Route: 065

REACTIONS (24)
  - Blood glucose increased [Unknown]
  - Weight decreased [Unknown]
  - Dizziness [Unknown]
  - Constipation [Unknown]
  - Dystonia [Unknown]
  - Sedation [Unknown]
  - Electrocardiogram QT prolonged [Unknown]
  - Parkinsonism [Unknown]
  - High density lipoprotein decreased [Unknown]
  - Akathisia [Unknown]
  - Somnolence [Unknown]
  - Weight increased [Unknown]
  - Nausea [Unknown]
  - Headache [Unknown]
  - Blood insulin increased [Unknown]
  - Suicidal ideation [Unknown]
  - Adverse event [Unknown]
  - Vomiting [Unknown]
  - Psychotic disorder [Unknown]
  - Anxiety [Unknown]
  - Tremor [Unknown]
  - Nasopharyngitis [Unknown]
  - Insomnia [Unknown]
  - Blood prolactin increased [Unknown]
